FAERS Safety Report 21596042 (Version 1)
Quarter: 2022Q4

REPORT INFORMATION
  Report Type: Spontaneous
  Country: CZ (occurrence: CZ)
  Receive Date: 20221115
  Receipt Date: 20221115
  Transmission Date: 20230112
  Serious: Yes (Hospitalization, Other)
  Sender: FDA-Public Use
  Company Number: CZ-BRISTOL-MYERS SQUIBB COMPANY-2022-134612

PATIENT
  Sex: Male
  Weight: 72 kg

DRUGS (2)
  1. OPDIVO [Suspect]
     Active Substance: NIVOLUMAB
     Indication: Malignant melanoma
     Dosage: UNK DOSE, EVERY 2 WEEKS
     Route: 065
     Dates: start: 201911
  2. OPDIVO [Suspect]
     Active Substance: NIVOLUMAB
     Dosage: UNK DOSE, EVERY MONTH
     Route: 065
     Dates: end: 202106

REACTIONS (9)
  - Pain [Unknown]
  - Headache [Unknown]
  - Diarrhoea [Unknown]
  - Hypotension [Recovering/Resolving]
  - Decreased appetite [Unknown]
  - Circulatory collapse [Unknown]
  - Quality of life decreased [Unknown]
  - Weight decreased [Unknown]
  - Angina pectoris [Unknown]

NARRATIVE: CASE EVENT DATE: 20210601
